FAERS Safety Report 14194119 (Version 1)
Quarter: 2017Q4

REPORT INFORMATION
  Report Type: Spontaneous
  Country: US (occurrence: None)
  Receive Date: 20171115
  Receipt Date: 20171115
  Transmission Date: 20180321
  Serious: No
  Sender: FDA-Public Use
  Company Number: None

PATIENT
  Age: 61 Year
  Sex: Male

DRUGS (1)
  1. AVONEX [Suspect]
     Active Substance: INTERFERON BETA-1A
     Dosage: 30MCG Q7D SUBQ
     Route: 058
     Dates: start: 20160916

REACTIONS (1)
  - Musculoskeletal disorder [None]

NARRATIVE: CASE EVENT DATE: 20171001
